FAERS Safety Report 5847910-6 (Version None)
Quarter: 2008Q3

REPORT INFORMATION
  Report Type: 
  Country: None (occurrence: None)
  Receive Date: 20080818
  Receipt Date: 20080807
  Transmission Date: 20090109
  Serious: Yes (Life-Threatening, Hospitalization, Disabling)
  Sender: FDA-Public Use
  Company Number: FR-BAYER-FR-2007-025983

PATIENT
  Age: 55 Year
  Sex: Female

DRUGS (11)
  1. FLUDARA [Suspect]
     Indication: B-CELL LYMPHOMA
     Route: 042
     Dates: start: 20060823, end: 20061123
  2. ENDOXAN [Suspect]
     Indication: B-CELL LYMPHOMA
     Dosage: UNIT DOSE: 700 MG/M2
     Route: 042
     Dates: start: 20060412, end: 20061123
  3. MABTHERA [Suspect]
     Indication: B-CELL LYMPHOMA
     Route: 042
     Dates: start: 20060412, end: 20061123
  4. NEUPOGEN [Suspect]
     Indication: NEUTROPENIA
     Route: 042
     Dates: start: 20061023, end: 20061030
  5. NEUPOGEN [Suspect]
     Route: 042
     Dates: start: 20061201, end: 20061206
  6. NEUPOGEN [Suspect]
     Route: 042
     Dates: start: 20061225, end: 20061227
  7. BACTRIM [Concomitant]
  8. ZELITREX /DEN/ [Concomitant]
  9. XANAX [Concomitant]
  10. STILNOX /FRA/ [Concomitant]
  11. NEULASTA [Concomitant]

REACTIONS (6)
  - BRONCHITIS [None]
  - COUGH [None]
  - DYSPNOEA [None]
  - LUNG DISORDER [None]
  - PULMONARY FIBROSIS [None]
  - WHEEZING [None]
